FAERS Safety Report 7374532 (Version 5)
Quarter: 2015Q1

REPORT INFORMATION
  Report Type: Spontaneous
  Country: US (occurrence: US)
  Receive Date: 20100503
  Receipt Date: 20150108
  Transmission Date: 20150721
  Serious: No
  Sender: FDA-Public Use
  Company Number: US-ASTRAZENECA-2009SE11979

PATIENT
  Age: 77 Year
  Sex: Female
  Weight: 52.2 kg

DRUGS (37)
  1. NEXIUM [Suspect]
     Active Substance: ESOMEPRAZOLE MAGNESIUM
     Indication: GASTROOESOPHAGEAL REFLUX DISEASE
     Route: 048
     Dates: start: 2002
  2. ALIGN [Concomitant]
     Active Substance: BIFIDOBACTERIUM LONGUM SUBSP. INFANTIS
     Indication: IRRITABLE BOWEL SYNDROME
     Dosage: DAILY
  3. TRAMADOL [Concomitant]
     Active Substance: TRAMADOL
     Indication: HEADACHE
  4. TRAZODONE [Concomitant]
     Active Substance: TRAZODONE HYDROCHLORIDE
     Indication: ARTHRITIS
  5. VITAMIN E [Concomitant]
     Active Substance: .ALPHA.-TOCOPHEROL
  6. VITAMIN C [Concomitant]
     Active Substance: ASCORBIC ACID
  7. VITAMIN D [Concomitant]
     Active Substance: CHOLECALCIFEROL
  8. TYLENOL [Concomitant]
     Active Substance: ACETAMINOPHEN
     Indication: NECK PAIN
     Dosage: DAILY
  9. MULTIVITAMIN [Concomitant]
     Active Substance: VITAMINS
  10. NEXIUM [Suspect]
     Active Substance: ESOMEPRAZOLE MAGNESIUM
     Indication: GASTROOESOPHAGEAL REFLUX DISEASE
     Route: 048
  11. SYMBICORT [Suspect]
     Active Substance: BUDESONIDE\FORMOTEROL FUMARATE DIHYDRATE
     Indication: ASTHMA
     Dosage: 160/4.5 MCG, 2 PUFFS BID
     Route: 055
     Dates: start: 201303
  12. CRESTOR [Suspect]
     Active Substance: ROSUVASTATIN CALCIUM
     Indication: BLOOD CHOLESTEROL INCREASED
     Route: 048
     Dates: start: 2013
  13. OTHER UNSPECIFIED [Suspect]
     Active Substance: UNSPECIFIED INGREDIENT
     Route: 065
  14. TIZANIDINE (TIZANIDINE) [Concomitant]
     Active Substance: TIZANIDINE
     Indication: SLEEP DISORDER
  15. AMBIEN [Concomitant]
     Active Substance: ZOLPIDEM TARTRATE
     Indication: SLEEP DISORDER
     Dates: start: 1970
  16. PREDNISONE. [Concomitant]
     Active Substance: PREDNISONE
     Dates: start: 2002
  17. ZANTAC LOOK A LIKE [Concomitant]
     Indication: GASTRIC DISORDER
  18. CIPROFLEX [Concomitant]
     Active Substance: CIPROFLOXACIN
     Indication: ONYCHOMYCOSIS
     Dates: start: 2013
  19. NEXIUM [Suspect]
     Active Substance: ESOMEPRAZOLE MAGNESIUM
     Indication: GASTRIC DISORDER
     Dosage: IN EMERGENCY SITUATIONS.
     Route: 048
     Dates: start: 2002
  20. TRAZODONE [Concomitant]
     Active Substance: TRAZODONE HYDROCHLORIDE
     Indication: HEADACHE
  21. BIOTIN [Concomitant]
     Active Substance: BIOTIN
     Indication: ONYCHOCLASIS
  22. CALCIUM PLUS VITAMIN D [Concomitant]
     Active Substance: CALCIUM\VITAMIN D
  23. LEVOTHYROXINE [Concomitant]
     Active Substance: LEVOTHYROXINE
     Indication: THYROID DISORDER
     Dosage: 7.5 DAILY
  24. TYLENOL [Concomitant]
     Active Substance: ACETAMINOPHEN
     Indication: HEADACHE
     Dosage: DAILY
  25. DESIPRAMINE [Concomitant]
     Active Substance: DESIPRAMINE
     Indication: GASTRIC DISORDER
  26. FISH OIL [Concomitant]
     Active Substance: FISH OIL
     Dates: start: 2013
  27. NEXIUM [Suspect]
     Active Substance: ESOMEPRAZOLE MAGNESIUM
     Indication: GASTROOESOPHAGEAL REFLUX DISEASE
     Dosage: IN EMERGENCY SITUATIONS.
     Route: 048
     Dates: start: 2002
  28. NEXIUM [Suspect]
     Active Substance: ESOMEPRAZOLE MAGNESIUM
     Indication: GASTRIC DISORDER
     Route: 048
  29. TAMOXIFEN [Suspect]
     Active Substance: TAMOXIFEN
     Indication: BREAST CANCER
     Route: 048
     Dates: start: 1970
  30. ZANTAC [Concomitant]
     Active Substance: RANITIDINE HYDROCHLORIDE
     Indication: GASTRIC DISORDER
  31. TIZANIDINE (TIZANIDINE) [Concomitant]
     Active Substance: TIZANIDINE
     Indication: MUSCLE DISORDER
  32. ONDANSETRON [Concomitant]
     Active Substance: ONDANSETRON
     Indication: NAUSEA
  33. COMPAZINE [Concomitant]
     Active Substance: PROCHLORPERAZINE MALEATE
     Dates: start: 1970
  34. NEXIUM [Suspect]
     Active Substance: ESOMEPRAZOLE MAGNESIUM
     Indication: GASTRIC DISORDER
     Route: 048
     Dates: start: 2002
  35. TRAMADOL [Concomitant]
     Active Substance: TRAMADOL
     Indication: NECK PAIN
  36. MIRALAX [Concomitant]
     Active Substance: POLYETHYLENE GLYCOL 3350
     Indication: CONSTIPATION
     Dosage: DAILY
  37. FEMARA [Concomitant]
     Active Substance: LETROZOLE

REACTIONS (40)
  - Osteoporosis [Not Recovered/Not Resolved]
  - Viral infection [Unknown]
  - Ulcer [Unknown]
  - Neck pain [Not Recovered/Not Resolved]
  - Feeling abnormal [Unknown]
  - Asthenia [Unknown]
  - Arthritis [Not Recovered/Not Resolved]
  - Road traffic accident [Not Recovered/Not Resolved]
  - Skin sensitisation [Not Recovered/Not Resolved]
  - Fatigue [Unknown]
  - Drug ineffective [Unknown]
  - Irritable bowel syndrome [Not Recovered/Not Resolved]
  - Dyspnoea [Unknown]
  - Gastric disorder [Not Recovered/Not Resolved]
  - Choking sensation [Unknown]
  - Secretion discharge [Unknown]
  - Drug effect decreased [Unknown]
  - Blood pressure decreased [Unknown]
  - Cough [Unknown]
  - Cataract [Unknown]
  - Headache [Not Recovered/Not Resolved]
  - Insomnia [Not Recovered/Not Resolved]
  - Intentional product misuse [Recovered/Resolved]
  - Gastric pH increased [Not Recovered/Not Resolved]
  - Chills [Unknown]
  - Alopecia [Not Recovered/Not Resolved]
  - Dysphagia [Unknown]
  - Eye disorder [Unknown]
  - Spinal osteoarthritis [Not Recovered/Not Resolved]
  - Dyspnoea exertional [Unknown]
  - Rhinorrhoea [Recovered/Resolved]
  - Dysphonia [Recovered/Resolved]
  - Oropharyngeal pain [Unknown]
  - Onychomycosis [Not Recovered/Not Resolved]
  - Onychoclasis [Not Recovered/Not Resolved]
  - Weight decreased [Not Recovered/Not Resolved]
  - Hyperhidrosis [Unknown]
  - Abdominal discomfort [Unknown]
  - Scar [Not Recovered/Not Resolved]
  - Adverse event [Unknown]

NARRATIVE: CASE EVENT DATE: 2008
